FAERS Safety Report 10209890 (Version 2)
Quarter: 2014Q2

REPORT INFORMATION
  Report Type: Spontaneous
  Country: US (occurrence: US)
  Receive Date: 20140602
  Receipt Date: 20140603
  Transmission Date: 20141212
  Serious: No
  Sender: FDA-Public Use
  Company Number: US-009507513-1405USA010259

PATIENT
  Age: 8 Year
  Sex: Male

DRUGS (3)
  1. NASONEX [Suspect]
     Indication: SEASONAL ALLERGY
     Dosage: DOSE/FREQUENCY-ONE SPRAY IN EACH NOSTRIL/ONCE A DAY
     Route: 045
     Dates: start: 2012
  2. NASONEX [Suspect]
     Dosage: UNK
     Route: 045
  3. MONTELUKAST SODIUM [Concomitant]

REACTIONS (6)
  - Epistaxis [Recovering/Resolving]
  - Epistaxis [Unknown]
  - Epistaxis [Recovered/Resolved]
  - Headache [Unknown]
  - Nasal congestion [Recovering/Resolving]
  - Nasal discomfort [Recovering/Resolving]
